FAERS Safety Report 4943675-0 (Version None)
Quarter: 2006Q1

REPORT INFORMATION
  Report Type: 
  Country: None (occurrence: None)
  Receive Date: 20060310
  Receipt Date: 20060220
  Transmission Date: 20060701
  Serious: Yes (Other)
  Sender: FDA-Public Use
  Company Number: FI200602004260

PATIENT
  Age: 25 Year
  Sex: Female

DRUGS (4)
  1. CYMBALTA [Suspect]
     Indication: DEPRESSION
     Dosage: 60 MG, DAILY (1/D), ORAL
     Route: 048
     Dates: start: 20051024
  2. VENLAFAXINE HCL [Concomitant]
  3. TOLVON/IRE/(MIANSERIN HYDROCHLORIDE) [Concomitant]
  4. OXAMIN (OXAZEPAM) [Concomitant]

REACTIONS (4)
  - ANXIETY [None]
  - ARRHYTHMIA [None]
  - CHEST PAIN [None]
  - DRUG INTERACTION [None]
